FAERS Safety Report 7310126-0 (Version None)
Quarter: 2011Q1

REPORT INFORMATION
  Report Type: 
  Country: None (occurrence: None)
  Receive Date: 20110224
  Receipt Date: 20110215
  Transmission Date: 20110831
  Serious: No
  Sender: FDA-Public Use
  Company Number: US-PFIZER INC-2009221009

PATIENT
  Sex: Female
  Weight: 81.2 kg

DRUGS (15)
  1. CHANTIX [Suspect]
     Indication: TOBACCO USER
     Dosage: 0.5 MG, 1X/DAY
     Route: 048
     Dates: start: 20100101, end: 20100101
  2. PSYLLIUM [Concomitant]
     Dosage: UNK
  3. BUPROPION [Concomitant]
     Indication: SMOKING CESSATION THERAPY
     Dosage: THE MAXIMUM DOSE ONE EVERY MORNING
     Dates: start: 20090501
  4. OXYCODONE [Concomitant]
     Dosage: UNK
  5. CHANTIX [Suspect]
     Indication: SMOKING CESSATION THERAPY
     Dosage: 0.5 MG, 1X/DAY
     Route: 048
     Dates: start: 20090516, end: 20100101
  6. ALBUTEROL [Concomitant]
     Dosage: UNK
  7. ASTELIN [Concomitant]
     Dosage: UNK
  8. CLARITIN [Concomitant]
     Dosage: UNK
  9. OXYCODONE AND ACETAMINOPHEN [Concomitant]
     Indication: BACK PAIN
     Dosage: 5 MG, AS NEEDED
  10. FLEXERIL [Concomitant]
     Dosage: UNK
  11. LOVAZA [Concomitant]
     Dosage: UNK
  12. FISH OIL [Concomitant]
     Dosage: UNK
  13. AMBIEN [Concomitant]
     Dosage: UNK
  14. LACTULOSE [Concomitant]
     Dosage: UNK
  15. KLONOPIN [Concomitant]
     Indication: ANXIETY DISORDER
     Dosage: 1 MG, 2X/DAY
     Dates: start: 20090501

REACTIONS (6)
  - HEADACHE [None]
  - PAROSMIA [None]
  - NAUSEA [None]
  - VOMITING [None]
  - WEIGHT DECREASED [None]
  - DECREASED APPETITE [None]
